FAERS Safety Report 8770758 (Version 1)
Quarter: 2012Q4

REPORT INFORMATION
  Report Type: Report from Study
  Country: GB (occurrence: GB)
  Receive Date: 20120906
  Receipt Date: 20120906
  Transmission Date: 20130627
  Serious: Yes (Death, Life-Threatening)
  Sender: FDA-Public Use
  Company Number: GB-PFIZER INC-2012215867

PATIENT
  Age: 30 Year
  Sex: Male
  Weight: 125.5 kg

DRUGS (9)
  1. GENOTROPIN [Suspect]
     Indication: HYPOPITUITARISM
     Dosage: 0.27 mg, 1x/day, 7 injections per week
     Dates: start: 19990608, end: 20020214
  2. DESMOSPRAY [Concomitant]
     Indication: BLOOD ANTIDIURETIC HORMONE DECREASED
     Dosage: UNK
     Dates: start: 20000323
  3. VALPROATE SODIUM [Concomitant]
     Indication: EPILEPSY
     Dosage: UNK
     Dates: start: 19960223
  4. VALPROATE SODIUM [Concomitant]
     Indication: CONVULSION
  5. VALPROATE SODIUM [Concomitant]
     Indication: CONVULSION
  6. TESTOSTERONE [Concomitant]
     Indication: BLOOD LUTEINISING HORMONE DECREASED
     Dosage: UNK
     Dates: start: 19930621
  7. TESTOSTERONE [Concomitant]
     Indication: HYPOGONADISM
  8. TESTOSTERONE [Concomitant]
     Indication: BLOOD FOLLICLE STIMULATING HORMONE DECREASED
  9. DESMOPRESSIN [Concomitant]
     Indication: BLOOD ANTIDIURETIC HORMONE DECREASED
     Dosage: UNK
     Dates: start: 19861015

REACTIONS (1)
  - Death [Fatal]
